FAERS Safety Report 25033067 (Version 5)
Quarter: 2025Q3

REPORT INFORMATION
  Report Type: Spontaneous
  Country: EU (occurrence: EU)
  Receive Date: 20250303
  Receipt Date: 20250811
  Transmission Date: 20251020
  Serious: Yes (Death, Other)
  Sender: MYLAN
  Company Number: EU-ETHYPHARM-2025000383

PATIENT
  Sex: Male

DRUGS (36)
  1. FENTANYL [Interacting]
     Active Substance: FENTANYL
     Indication: Product used for unknown indication
  2. FENTANYL [Interacting]
     Active Substance: FENTANYL
     Route: 065
  3. FENTANYL [Interacting]
     Active Substance: FENTANYL
     Route: 065
  4. FENTANYL [Interacting]
     Active Substance: FENTANYL
  5. VENLAFAXINE [Interacting]
     Active Substance: VENLAFAXINE HYDROCHLORIDE
     Indication: Product used for unknown indication
  6. VENLAFAXINE [Interacting]
     Active Substance: VENLAFAXINE HYDROCHLORIDE
     Route: 065
  7. VENLAFAXINE [Interacting]
     Active Substance: VENLAFAXINE HYDROCHLORIDE
     Route: 065
  8. VENLAFAXINE [Interacting]
     Active Substance: VENLAFAXINE HYDROCHLORIDE
  9. QUETIAPINE [Interacting]
     Active Substance: QUETIAPINE
     Indication: Product used for unknown indication
  10. QUETIAPINE [Interacting]
     Active Substance: QUETIAPINE
     Route: 065
  11. QUETIAPINE [Interacting]
     Active Substance: QUETIAPINE
     Route: 065
  12. QUETIAPINE [Interacting]
     Active Substance: QUETIAPINE
  13. ALPRAZOLAM [Interacting]
     Active Substance: ALPRAZOLAM
     Indication: Product used for unknown indication
  14. ALPRAZOLAM [Interacting]
     Active Substance: ALPRAZOLAM
     Route: 065
  15. ALPRAZOLAM [Interacting]
     Active Substance: ALPRAZOLAM
     Route: 065
  16. ALPRAZOLAM [Interacting]
     Active Substance: ALPRAZOLAM
  17. ZOLPIDEM [Interacting]
     Active Substance: ZOLPIDEM TARTRATE
     Indication: Product used for unknown indication
  18. ZOLPIDEM [Interacting]
     Active Substance: ZOLPIDEM TARTRATE
     Route: 065
  19. ZOLPIDEM [Interacting]
     Active Substance: ZOLPIDEM TARTRATE
     Route: 065
  20. ZOLPIDEM [Interacting]
     Active Substance: ZOLPIDEM TARTRATE
  21. PROPOFOL [Interacting]
     Active Substance: PROPOFOL
     Indication: Product used for unknown indication
  22. PROPOFOL [Interacting]
     Active Substance: PROPOFOL
     Route: 065
  23. PROPOFOL [Interacting]
     Active Substance: PROPOFOL
     Route: 065
  24. PROPOFOL [Interacting]
     Active Substance: PROPOFOL
  25. RIVOTRIL [Interacting]
     Active Substance: CLONAZEPAM
     Indication: Product used for unknown indication
  26. RIVOTRIL [Interacting]
     Active Substance: CLONAZEPAM
     Route: 065
  27. RIVOTRIL [Interacting]
     Active Substance: CLONAZEPAM
     Route: 065
  28. RIVOTRIL [Interacting]
     Active Substance: CLONAZEPAM
  29. DIAZEPAM [Interacting]
     Active Substance: DIAZEPAM
     Indication: Product used for unknown indication
  30. DIAZEPAM [Interacting]
     Active Substance: DIAZEPAM
     Route: 065
  31. DIAZEPAM [Interacting]
     Active Substance: DIAZEPAM
     Route: 065
  32. DIAZEPAM [Interacting]
     Active Substance: DIAZEPAM
  33. NAPROXEN [Concomitant]
     Active Substance: NAPROXEN
     Indication: Product used for unknown indication
  34. NAPROXEN [Concomitant]
     Active Substance: NAPROXEN
     Route: 065
  35. NAPROXEN [Concomitant]
     Active Substance: NAPROXEN
     Route: 065
  36. NAPROXEN [Concomitant]
     Active Substance: NAPROXEN

REACTIONS (9)
  - Acute pulmonary oedema [Fatal]
  - Non-cardiogenic pulmonary oedema [Fatal]
  - Intentional product misuse [Fatal]
  - Drug abuse [Fatal]
  - Drug interaction [Fatal]
  - Drug dependence [Fatal]
  - Toxicity to various agents [Fatal]
  - Overdose [Fatal]
  - Suicide attempt [Unknown]
